FAERS Safety Report 24174605 (Version 1)
Quarter: 2024Q3

REPORT INFORMATION
  Report Type: Spontaneous
  Country: JP (occurrence: JP)
  Receive Date: 20240805
  Receipt Date: 20240805
  Transmission Date: 20241016
  Serious: Yes (Life-Threatening, Other)
  Sender: PFIZER
  Company Number: JP-PFIZER INC-PV202400098955

PATIENT
  Age: 41 Year
  Sex: Female

DRUGS (4)
  1. METHYLPREDNISOLONE SODIUM SUCCINATE [Suspect]
     Active Substance: METHYLPREDNISOLONE SODIUM SUCCINATE
     Indication: Acute hepatic failure
     Dosage: 1000 MG (X 3 DAYS)
     Dates: start: 20231030
  2. METHYLPREDNISOLONE SODIUM SUCCINATE [Suspect]
     Active Substance: METHYLPREDNISOLONE SODIUM SUCCINATE
     Indication: Autoimmune hepatitis
     Dosage: UNK (TAPERED OFF)
  3. METHYLPREDNISOLONE SODIUM SUCCINATE [Suspect]
     Active Substance: METHYLPREDNISOLONE SODIUM SUCCINATE
     Dosage: UNK (TAPERED OFF)
  4. AZATHIOPRINE [Concomitant]
     Active Substance: AZATHIOPRINE
     Dosage: 50 MG
     Route: 048

REACTIONS (5)
  - Duodenal ulcer perforation [Unknown]
  - Shock haemorrhagic [Unknown]
  - Cytomegalovirus test positive [Unknown]
  - Cardiac arrest [Unknown]
  - Off label use [Unknown]

NARRATIVE: CASE EVENT DATE: 20230101
